FAERS Safety Report 13829121 (Version 1)
Quarter: 2017Q3

REPORT INFORMATION
  Report Type: Spontaneous
  Country: NL (occurrence: NL)
  Receive Date: 20170803
  Receipt Date: 20170803
  Transmission Date: 20171127
  Serious: Yes (Other)
  Sender: FDA-Public Use
  Company Number: NL-B.I. PHARMACEUTICALS,INC./RIDGEFIELD-2017-BI-043142

PATIENT
  Age: 73 Year
  Sex: Male
  Weight: 74 kg

DRUGS (3)
  1. TAMSULOSIN [Suspect]
     Active Substance: TAMSULOSIN
     Indication: PROSTATIC DISORDER
     Route: 048
     Dates: start: 20170712, end: 20170715
  2. OXYCODONE HYDROCHLORIDE. [Concomitant]
     Active Substance: OXYCODONE HYDROCHLORIDE
     Indication: PRODUCT USED FOR UNKNOWN INDICATION
     Route: 065
  3. TAMSULOSIN [Suspect]
     Active Substance: TAMSULOSIN
     Indication: PRODUCT USED FOR UNKNOWN INDICATION
     Route: 065

REACTIONS (8)
  - Circulatory collapse [Unknown]
  - Syncope [Unknown]
  - Hypotension [Unknown]
  - Hypotension [Recovered/Resolved]
  - Syncope [Recovered/Resolved]
  - Asthenia [Recovered/Resolved]
  - Dizziness [Unknown]
  - Dizziness [Recovered/Resolved]

NARRATIVE: CASE EVENT DATE: 20170713
